FAERS Safety Report 4586455-0 (Version None)
Quarter: 2005Q1

REPORT INFORMATION
  Report Type: 
  Country: None (occurrence: None)
  Receive Date: 20050218
  Receipt Date: 20040113
  Transmission Date: 20050727
  Serious: Yes (Death, Hospitalization)
  Sender: FDA-Public Use
  Company Number: 200410102EU

PATIENT
  Age: 69 Year
  Sex: Female

DRUGS (14)
  1. TAXOTERE [Suspect]
     Indication: BREAST CANCER
     Route: 042
     Dates: start: 20031103, end: 20031222
  2. NAVELBINE [Suspect]
     Indication: BREAST CANCER
     Route: 042
     Dates: start: 20031103, end: 20031222
  3. CLOMIPRAMINE HCL [Concomitant]
  4. ALPRAZOLAM [Concomitant]
  5. CITICOLINE [Concomitant]
  6. IDAPTAN [Concomitant]
  7. RENITEC [Concomitant]
  8. ZARATOR [Concomitant]
  9. DIAMICRON [Concomitant]
  10. DIASTABOL [Concomitant]
  11. NORMOVITE ANTIANEMICO [Concomitant]
  12. ZINNAT [Concomitant]
     Dates: start: 20041117, end: 20041124
  13. BAYCIP [Concomitant]
     Dates: start: 20041117, end: 20041124
  14. CEPHALOSPORINS AND RELATED SUBSTANCES [Concomitant]
     Dates: start: 20041108, end: 20041116

REACTIONS (6)
  - DEPRESSED LEVEL OF CONSCIOUSNESS [None]
  - ENCEPHALOPATHY [None]
  - FEBRILE NEUTROPENIA [None]
  - GENERAL PHYSICAL HEALTH DETERIORATION [None]
  - PULMONARY EMBOLISM [None]
  - RENAL FAILURE [None]
